FAERS Safety Report 9697511 (Version 9)
Quarter: 2015Q1

REPORT INFORMATION
  Report Type: Report from Study
  Country: FR (occurrence: FR)
  Receive Date: 20131120
  Receipt Date: 20150108
  Transmission Date: 20150721
  Serious: Yes (Death, Life-Threatening, Hospitalization, Other)
  Sender: FDA-Public Use
  Company Number: FR-TEVA-444829USA

PATIENT
  Age: 61 Year
  Sex: Male

DRUGS (48)
  1. REVLIMID [Suspect]
     Active Substance: LENALIDOMIDE
     Dates: start: 20111107, end: 20111120
  2. REVLIMID [Suspect]
     Active Substance: LENALIDOMIDE
     Dates: start: 201112, end: 20120823
  3. DEXAMETHASONE. [Suspect]
     Active Substance: DEXAMETHASONE
     Dates: start: 20120905, end: 20130117
  4. DEXAMETHASONE. [Suspect]
     Active Substance: DEXAMETHASONE
     Dates: start: 20111107, end: 20111120
  5. ENDOXAN [Suspect]
     Active Substance: CYCLOPHOSPHAMIDE
     Dates: start: 20130617
  6. HYPNOVEL [Concomitant]
     Active Substance: MIDAZOLAM\MIDAZOLAM HYDROCHLORIDE
     Indication: ANXIOLYTIC THERAPY
  7. NEUPOGEN [Concomitant]
     Active Substance: FILGRASTIM
     Dates: start: 20121110
  8. NEUPOGEN [Concomitant]
     Active Substance: FILGRASTIM
     Dates: start: 20130104
  9. CIFLOX [Concomitant]
     Active Substance: CIPROFLOXACIN
     Dates: start: 20130306
  10. DEXAMETHASONE. [Suspect]
     Active Substance: DEXAMETHASONE
     Dates: start: 20130125, end: 20130528
  11. MELPHALAN [Suspect]
     Active Substance: MELPHALAN
     Dates: start: 20110827
  12. OXYCODONE [Concomitant]
     Active Substance: OXYCODONE
     Indication: PAIN
  13. NEUPOGEN [Concomitant]
     Active Substance: FILGRASTIM
     Dates: start: 20121011
  14. NEUPOGEN [Concomitant]
     Active Substance: FILGRASTIM
     Dates: start: 20130111
  15. RHOPHYLAC [Concomitant]
     Active Substance: HUMAN RHO(D) IMMUNE GLOBULIN
     Dates: start: 20130527
  16. ROCEPHIN [Concomitant]
     Active Substance: CEFTRIAXONE SODIUM
     Dates: start: 20130223
  17. VFEND [Concomitant]
     Active Substance: VORICONAZOLE
     Dates: start: 20130306
  18. AUGMENTIN [Concomitant]
     Active Substance: AMOXICILLIN\CLAVULANATE POTASSIUM
     Dates: start: 20130513
  19. HYPNOVEL [Concomitant]
     Active Substance: MIDAZOLAM\MIDAZOLAM HYDROCHLORIDE
  20. BENDAMUSTINE [Suspect]
     Active Substance: BENDAMUSTINE
     Indication: PLASMA CELL MYELOMA
     Route: 042
     Dates: start: 20120905, end: 20130117
  21. REVLIMID [Suspect]
     Active Substance: LENALIDOMIDE
     Indication: PLASMA CELL MYELOMA
     Dates: start: 20110520, end: 201108
  22. AUGMENTIN [Concomitant]
     Active Substance: AMOXICILLIN\CLAVULANATE POTASSIUM
     Dates: start: 20130216
  23. ENDOXAN [Suspect]
     Active Substance: CYCLOPHOSPHAMIDE
     Indication: PLASMA CELL MYELOMA
     Dates: start: 20130617, end: 201306
  24. HYPNOVEL [Concomitant]
     Active Substance: MIDAZOLAM\MIDAZOLAM HYDROCHLORIDE
     Indication: SEDATIVE THERAPY
  25. FLAGYL [Concomitant]
     Active Substance: METRONIDAZOLE\METRONIDAZOLE HYDROCHLORIDE
     Dates: start: 20130223
  26. NEORECORMON [Concomitant]
     Active Substance: ERYTHROPOIETIN
     Dates: start: 201301
  27. CIFLOX [Concomitant]
     Active Substance: CIPROFLOXACIN
     Dates: start: 20130216
  28. TIENAM [Concomitant]
     Active Substance: CILASTATIN SODIUM\IMIPENEM
     Dates: start: 20130513
  29. NEULASTA [Concomitant]
     Active Substance: PEGFILGRASTIM
     Dates: start: 20130104
  30. NEUPOGEN [Concomitant]
     Active Substance: FILGRASTIM
     Dates: start: 20121207
  31. VFEND [Concomitant]
     Active Substance: VORICONAZOLE
     Dates: start: 201305
  32. RAMIPRIL. [Concomitant]
     Active Substance: RAMIPRIL
  33. VELCADE [Suspect]
     Active Substance: BORTEZOMIB
     Dates: start: 20111107, end: 20111120
  34. DEXAMETHASONE. [Suspect]
     Active Substance: DEXAMETHASONE
     Indication: PLASMA CELL MYELOMA
     Dates: start: 20110520, end: 201108
  35. POMALIDOMIDE [Suspect]
     Active Substance: POMALIDOMIDE
     Indication: PLASMA CELL MYELOMA
     Dates: start: 20130125, end: 20130528
  36. KARDEGIC [Concomitant]
     Active Substance: ASPIRIN LYSINE
     Dates: start: 201301
  37. TAZOCILLINE [Concomitant]
     Active Substance: PIPERACILLIN SODIUM\TAZOBACTAM SODIUM
     Dates: start: 20130306
  38. AUGMENTIN [Concomitant]
     Active Substance: AMOXICILLIN\CLAVULANATE POTASSIUM
     Dates: start: 20130128
  39. CIFLOX [Concomitant]
     Active Substance: CIPROFLOXACIN
     Dates: start: 20130513
  40. NEULASTA [Concomitant]
     Active Substance: PEGFILGRASTIM
     Dates: start: 20121207
  41. VELCADE [Suspect]
     Active Substance: BORTEZOMIB
     Indication: PLASMA CELL MYELOMA
     Dates: start: 20120905, end: 20130117
  42. INSULIN [Concomitant]
     Active Substance: INSULIN NOS
     Indication: DIABETES MELLITUS
  43. OXYNORM [Concomitant]
     Active Substance: OXYCODONE HYDROCHLORIDE
     Indication: MUSCULOSKELETAL CHEST PAIN
  44. NEUPOGEN [Concomitant]
     Active Substance: FILGRASTIM
     Dates: start: 20130513
  45. AUGMENTIN [Concomitant]
     Active Substance: AMOXICILLIN\CLAVULANATE POTASSIUM
     Dates: start: 20130513
  46. CIFLOX [Concomitant]
     Active Substance: CIPROFLOXACIN
     Dates: start: 20130128
  47. NEULASTA [Concomitant]
     Active Substance: PEGFILGRASTIM
     Dates: start: 20121011
  48. NEULASTA [Concomitant]
     Active Substance: PEGFILGRASTIM
     Dates: start: 20130111

REACTIONS (5)
  - Thrombocytopenia [Recovered/Resolved]
  - Hypercalcaemia [Unknown]
  - Anaemia [Recovered/Resolved]
  - Anaemia [Fatal]
  - Pyrexia [Unknown]

NARRATIVE: CASE EVENT DATE: 20130610
